FAERS Safety Report 11254537 (Version 1)
Quarter: 2015Q3

REPORT INFORMATION
  Report Type: Spontaneous
  Country: US (occurrence: None)
  Receive Date: 20150708
  Receipt Date: 20150708
  Transmission Date: 20151125
  Serious: Yes (Other)
  Sender: FDA-Public Use
  Company Number: None

PATIENT
  Age: 47 Year
  Sex: Female
  Weight: 90.72 kg

DRUGS (2)
  1. MOXIFLOXACIN 400MG [Suspect]
     Active Substance: MOXIFLOXACIN
     Indication: RESPIRATORY DISORDER
     Route: 048
  2. LEVOFLOXACIN 750MG MFG ZYDUS [Suspect]
     Active Substance: LEVOFLOXACIN
     Indication: RESPIRATORY DISORDER
     Route: 048

REACTIONS (5)
  - Tibia fracture [None]
  - Injury [None]
  - Fall [None]
  - Ligament rupture [None]
  - Meniscus injury [None]

NARRATIVE: CASE EVENT DATE: 20150216
